FAERS Safety Report 19699428 (Version 1)
Quarter: 2021Q3

REPORT INFORMATION
  Report Type: Spontaneous
  Country: PL (occurrence: PL)
  Receive Date: 20210813
  Receipt Date: 20210813
  Transmission Date: 20211014
  Serious: Yes (Other)
  Sender: FDA-Public Use
  Company Number: NVSC2021PL179815

PATIENT
  Age: 62 Year
  Sex: Female
  Weight: 62 kg

DRUGS (1)
  1. HYCAMTIN [Suspect]
     Active Substance: TOPOTECAN HYDROCHLORIDE
     Indication: OVARIAN CANCER
     Dosage: 3 MG (5TH LINE OF THERAPY ONGOING STRENGTH 0,001)
     Route: 048
     Dates: start: 20201027

REACTIONS (3)
  - Liver injury [Unknown]
  - Asthenia [Unknown]
  - Alopecia [Unknown]
